FAERS Safety Report 7878654-7 (Version None)
Quarter: 2011Q4

REPORT INFORMATION
  Report Type: 
  Country: None (occurrence: None)
  Receive Date: 20111018
  Receipt Date: 20101122
  Transmission Date: 20120403
  Serious: Yes (Other)
  Sender: FDA-Public Use
  Company Number: 2010P1002809

PATIENT
  Age: 78 Year
  Sex: Male
  Weight: 108.8633 kg

DRUGS (5)
  1. FENTANYL-75 [Suspect]
     Indication: PAIN MANAGEMENT
     Dosage: 1 PATCH;Q48H;TDER
     Route: 062
     Dates: start: 20110214
  2. FENTANYL-75 [Suspect]
     Indication: PAIN MANAGEMENT
     Dosage: 1 PATCH;Q48H;TDER
     Route: 062
     Dates: start: 20090101, end: 20090101
  3. OXYCODONE HCL [Concomitant]
  4. FENTANYL [Suspect]
     Indication: PAIN MANAGEMENT
     Dosage: 1 PATCH;Q72HRS;TDER 1 PATCH;Q48HRS;TDER
     Route: 062
     Dates: start: 20090101, end: 20110214
  5. FENTANYL [Suspect]
     Indication: PAIN MANAGEMENT
     Dosage: 1 PATCH;Q72HRS;TDER 1 PATCH;Q48HRS;TDER
     Route: 062
     Dates: start: 20070101, end: 20090101

REACTIONS (13)
  - DRUG INEFFECTIVE [None]
  - DRUG EFFECT DECREASED [None]
  - CONSTIPATION [None]
  - ARTHRALGIA [None]
  - DRUG EFFECT INCREASED [None]
  - AMNESIA [None]
  - TACHYCARDIA [None]
  - SOMNOLENCE [None]
  - STRESS [None]
  - PRODUCT ADHESION ISSUE [None]
  - HYPERHIDROSIS [None]
  - MOVEMENT DISORDER [None]
  - LOSS OF LIBIDO [None]
